FAERS Safety Report 10168333 (Version 2)
Quarter: 2014Q2

REPORT INFORMATION
  Report Type: Report from Study
  Country: US (occurrence: US)
  Receive Date: 20140512
  Receipt Date: 20140522
  Transmission Date: 20141212
  Serious: No
  Sender: FDA-Public Use
  Company Number: PHEH2014US009570

PATIENT
  Sex: Female
  Weight: 78.5 kg

DRUGS (1)
  1. GILENYA [Suspect]
     Indication: MULTIPLE SCLEROSIS
     Dosage: 0.5 MG, QD
     Route: 048
     Dates: start: 20110412

REACTIONS (3)
  - Tremor [Not Recovered/Not Resolved]
  - Wheezing [Unknown]
  - Cough [Not Recovered/Not Resolved]
